FAERS Safety Report 9101744 (Version 1)
Quarter: 2013Q1

REPORT INFORMATION
  Report Type: Spontaneous
  Country: CH (occurrence: CH)
  Receive Date: 20130218
  Receipt Date: 20130218
  Transmission Date: 20140127
  Serious: Yes (Hospitalization, Other)
  Sender: FDA-Public Use
  Company Number: CH-009507513-1302CHE006881

PATIENT
  Age: 58 Year
  Sex: Female

DRUGS (2)
  1. REMERON [Suspect]
     Dosage: UNK
     Route: 048
     Dates: start: 20121001, end: 20121001
  2. OLANZAPINE [Suspect]
     Dosage: UNK
     Route: 048
     Dates: start: 20121001, end: 20121001

REACTIONS (5)
  - Tachycardia [Recovered/Resolved]
  - Hypokalaemia [Recovered/Resolved]
  - Suicide attempt [Recovered/Resolved]
  - Somnolence [Recovered/Resolved]
  - Confusional state [Recovered/Resolved]
